FAERS Safety Report 8543086-5 (Version None)
Quarter: 2012Q3

REPORT INFORMATION
  Report Type: 
  Country: None (occurrence: None)
  Receive Date: 20120727
  Receipt Date: 20110726
  Transmission Date: 20120928
  Serious: No
  Sender: FDA-Public Use
  Company Number: US-MYLANLABS-2011S1015461

PATIENT
  Age: 73 Year
  Sex: Female
  Weight: 58.97 kg

DRUGS (2)
  1. LEVOTHYROXINE SODIUM [Suspect]
     Indication: HYPOTHYROIDISM
     Route: 048
     Dates: start: 20110624
  2. DAPSONE [Concomitant]
     Indication: DERMATITIS HERPETIFORMIS

REACTIONS (1)
  - DERMATITIS HERPETIFORMIS [None]
